FAERS Safety Report 8784965 (Version 2)
Quarter: 2012Q4

REPORT INFORMATION
  Report Type: 
  Country: JP (occurrence: JP)
  Receive Date: 20120914
  Receipt Date: 20120928
  Transmission Date: 20130627
  Serious: Yes (Other)
  Sender: FDA-Public Use
  Company Number: JP-JNJFOC-20120904423

PATIENT
  Age: 62 Year
  Sex: Male

DRUGS (3)
  1. STELARA [Suspect]
     Indication: DERMATITIS PSORIASIFORM
     Route: 058
     Dates: start: 201106
  2. METHOTREXATE [Concomitant]
     Indication: DERMATITIS PSORIASIFORM
     Route: 065
  3. ANTIPSORIATICS FOR TOPICAL USE [Concomitant]
     Indication: PSORIASIS
     Route: 065

REACTIONS (2)
  - Psoriasis [Recovered/Resolved]
  - Off label use [Unknown]
